FAERS Safety Report 9127585 (Version 1)
Quarter: 2013Q1

REPORT INFORMATION
  Report Type: Spontaneous
  Country: US (occurrence: US)
  Receive Date: 20130228
  Receipt Date: 20130228
  Transmission Date: 20140127
  Serious: No
  Sender: FDA-Public Use
  Company Number: US-GLAXOSMITHKLINE-A0985729A

PATIENT
  Age: 44 Year
  Sex: Female

DRUGS (9)
  1. LAMOTRIGINE [Suspect]
     Indication: BIPOLAR II DISORDER
     Dosage: 200MG PER DAY
     Route: 048
     Dates: start: 20120614, end: 20120705
  2. ADDERALL [Concomitant]
  3. CYMBALTA [Concomitant]
  4. SOMA [Concomitant]
  5. CELEXA [Concomitant]
  6. KLONOPIN [Concomitant]
  7. IBUPROFEN [Concomitant]
  8. ARMOUR THYROID [Concomitant]
  9. TORADOL INJECTION [Concomitant]

REACTIONS (4)
  - Rash [Unknown]
  - Pain [Unknown]
  - Back pain [Unknown]
  - Paraesthesia [Unknown]
